FAERS Safety Report 20949971 (Version 1)
Quarter: 2022Q2

REPORT INFORMATION
  Report Type: Report from Study
  Country: CA (occurrence: CA)
  Receive Date: 20220613
  Receipt Date: 20220613
  Transmission Date: 20220721
  Serious: Yes (Hospitalization)
  Sender: FDA-Public Use
  Company Number: CA-JNJFOC-20210415859

PATIENT
  Age: 46 Year
  Sex: Female
  Weight: 66.5 kg

DRUGS (2)
  1. STELARA [Suspect]
     Active Substance: USTEKINUMAB
     Indication: Psoriasis
     Dosage: ADDITIONAL THERAPY START DATE: 02/FEB/2021. EXPIRY DATE: 01-JUL-2024
     Route: 058
     Dates: start: 20150805
  2. STELARA [Suspect]
     Active Substance: USTEKINUMAB

REACTIONS (6)
  - Gastrointestinal infection [Recovered/Resolved]
  - Myocardial infarction [Unknown]
  - Coronary artery occlusion [Unknown]
  - Chest pain [Unknown]
  - Total lung capacity decreased [Recovered/Resolved]
  - Psoriasis [Unknown]

NARRATIVE: CASE EVENT DATE: 20210225
